FAERS Safety Report 9905861 (Version 2)
Quarter: 2014Q1

REPORT INFORMATION
  Report Type: Spontaneous
  Country: CN (occurrence: CN)
  Receive Date: 20140218
  Receipt Date: 20140306
  Transmission Date: 20141002
  Serious: Yes (Other)
  Sender: FDA-Public Use
  Company Number: CN-PFIZER INC-2014039078

PATIENT
  Age: 73 Year
  Sex: Female

DRUGS (2)
  1. TYGACIL [Suspect]
     Indication: ACINETOBACTER INFECTION
     Dosage: UNK
     Route: 041
     Dates: start: 20140129, end: 20140208
  2. TIENAM [Concomitant]
     Indication: ACINETOBACTER INFECTION

REACTIONS (6)
  - Abasia [Recovered/Resolved]
  - Asthenia [Recovered/Resolved]
  - Blood electrolytes decreased [Recovered/Resolved]
  - Blood sodium decreased [Unknown]
  - Protein total abnormal [Unknown]
  - Dysstasia [Recovered/Resolved]
